FAERS Safety Report 5128784-8 (Version None)
Quarter: 2006Q4

REPORT INFORMATION
  Report Type: 
  Country: None (occurrence: None)
  Receive Date: 20061017
  Receipt Date: 20061011
  Transmission Date: 20070319
  Serious: Yes (Other)
  Sender: FDA-Public Use
  Company Number: US-BRISTOL-MYERS SQUIBB COMPANY-13539614

PATIENT
  Age: 52 Year
  Sex: Male

DRUGS (1)
  1. ARIPIPRAZOLE [Suspect]

REACTIONS (1)
  - BLOOD TRIGLYCERIDES INCREASED [None]
